FAERS Safety Report 9815432 (Version 3)
Quarter: 2014Q1

REPORT INFORMATION
  Report Type: Spontaneous
  Country: US (occurrence: US)
  Receive Date: 20140114
  Receipt Date: 20140211
  Transmission Date: 20141002
  Serious: Yes (Hospitalization)
  Sender: FDA-Public Use
  Company Number: US-009507513-1401USA004455

PATIENT
  Sex: Male

DRUGS (2)
  1. JANUVIA [Suspect]
     Indication: TYPE 2 DIABETES MELLITUS
     Dosage: 100 DF, UNK
     Route: 048
     Dates: start: 201109
  2. JANUVIA [Suspect]
     Dosage: 50 DF, UNK
     Dates: start: 2013

REACTIONS (4)
  - Fall [Recovered/Resolved]
  - Medical device complication [Recovered/Resolved]
  - Wrong technique in drug usage process [Unknown]
  - Drug administration error [Unknown]
